FAERS Safety Report 9688494 (Version 2)
Quarter: 2013Q4

REPORT INFORMATION
  Report Type: Spontaneous
  Country: JP (occurrence: JP)
  Receive Date: 20131114
  Receipt Date: 20131129
  Transmission Date: 20140711
  Serious: Yes (Hospitalization)
  Sender: FDA-Public Use
  Company Number: JP-009507513-1311JPN003105

PATIENT
  Age: 71 Year
  Sex: Female

DRUGS (14)
  1. EMEND [Suspect]
     Indication: PROPHYLAXIS OF NAUSEA AND VOMITING
     Dosage: UNK
     Route: 048
     Dates: start: 201205, end: 2012
  2. CAPECITABINE [Suspect]
     Indication: HER-2 POSITIVE GASTRIC CANCER
     Dosage: UNK
     Route: 048
     Dates: start: 2012, end: 2012
  3. CAPECITABINE [Suspect]
     Dosage: UNK
     Route: 048
     Dates: start: 201205, end: 2012
  4. CAPECITABINE [Suspect]
     Dosage: UNK
     Route: 048
     Dates: start: 2012, end: 2012
  5. CAPECITABINE [Suspect]
     Dosage: UNK
     Route: 048
     Dates: start: 2012, end: 2012
  6. TRASTUZUMAB [Concomitant]
     Dosage: UNK
     Dates: start: 201205, end: 2012
  7. TRASTUZUMAB [Concomitant]
     Dosage: UNK
     Dates: start: 2012, end: 2012
  8. TRASTUZUMAB [Concomitant]
     Dosage: UNK
     Dates: start: 2012, end: 2012
  9. CISPLATIN [Concomitant]
     Dosage: UNK
     Dates: start: 201205, end: 2012
  10. CISPLATIN [Concomitant]
     Dosage: 60 MG/M2, UNK
     Dates: start: 2012, end: 2012
  11. CISPLATIN [Concomitant]
     Dosage: 60 MG/M2, UNK
     Dates: start: 2012, end: 2012
  12. PALONOSETRON HYDROCHLORIDE [Concomitant]
     Dosage: UNK
     Dates: start: 201205
  13. PYRIDOXINE [Concomitant]
     Indication: PROPHYLAXIS
     Dosage: UNK
     Dates: start: 201205
  14. DEXAMETHASONE [Concomitant]
     Dosage: UNK
     Route: 048
     Dates: start: 201205

REACTIONS (2)
  - Palmar-plantar erythrodysaesthesia syndrome [Recovered/Resolved]
  - Nausea [Recovered/Resolved]
